FAERS Safety Report 5648552-8 (Version None)
Quarter: 2008Q1

REPORT INFORMATION
  Report Type: 
  Country: None (occurrence: None)
  Receive Date: 20080303
  Receipt Date: 20080303
  Transmission Date: 20080703
  Serious: Yes (Other)
  Sender: FDA-Public Use
  Company Number: None

PATIENT
  Age: 33 Year
  Sex: Female
  Weight: 63.5036 kg

DRUGS (1)
  1. DELSYM [Suspect]
     Indication: BRONCHITIS

REACTIONS (5)
  - DRUG ABUSE [None]
  - EUPHORIC MOOD [None]
  - INTENTIONAL DRUG MISUSE [None]
  - OVERDOSE [None]
  - PARAESTHESIA [None]
